FAERS Safety Report 8083918-0 (Version None)
Quarter: 2012Q1

REPORT INFORMATION
  Report Type: 
  Country: None (occurrence: None)
  Receive Date: 20120128
  Receipt Date: 20110113
  Transmission Date: 20120608
  Serious: No
  Sender: FDA-Public Use
  Company Number: US-ABBOTT-11P-163-0697320-00

PATIENT
  Age: 46 Year
  Sex: Female

DRUGS (8)
  1. NAPROXEN [Concomitant]
     Indication: PRODUCT USED FOR UNKNOWN INDICATION
     Dosage: TAKEN FOR YEARS
  2. SUMATRIPTAN SUCCINATE [Concomitant]
     Indication: MIGRAINE
     Dosage: TAKEN FOR YEARS
  3. CRESTOR [Concomitant]
     Indication: BLOOD CHOLESTEROL
     Dosage: FOR A FEW MONTHS
  4. GLYCOPYRROLATE [Concomitant]
     Indication: GASTRIC DISORDER
  5. DEXILANT [Concomitant]
     Indication: DYSPEPSIA
  6. VITAMIN D2 [Concomitant]
     Indication: PRODUCT USED FOR UNKNOWN INDICATION
  7. PREDNISONE TAB [Concomitant]
     Indication: CROHN'S DISEASE
     Dosage: FOR A MONTH
  8. HUMIRA [Suspect]
     Indication: CROHN'S DISEASE
     Dates: start: 20101101

REACTIONS (5)
  - DRUG INEFFECTIVE [None]
  - INJECTION SITE PAIN [None]
  - FATIGUE [None]
  - ABDOMINAL DISTENSION [None]
  - ABDOMINAL PAIN [None]
